FAERS Safety Report 17298357 (Version 5)
Quarter: 2022Q4

REPORT INFORMATION
  Report Type: Spontaneous
  Country: JP (occurrence: JP)
  Receive Date: 20200122
  Receipt Date: 20221114
  Transmission Date: 20230113
  Serious: Yes (Hospitalization)
  Sender: FDA-Public Use
  Company Number: None

PATIENT
  Age: 18 Year
  Sex: Female

DRUGS (2)
  1. EVEROLIMUS [Suspect]
     Active Substance: EVEROLIMUS
     Indication: Osteosarcoma recurrent
     Dosage: 5 MG, QD
     Route: 048
  2. SORAFENIB [Suspect]
     Active Substance: SORAFENIB
     Indication: Osteosarcoma recurrent
     Dosage: 800 MG, QD
     Route: 065

REACTIONS (2)
  - Bronchial fistula [Recovering/Resolving]
  - Product use in unapproved indication [Unknown]
